FAERS Safety Report 14926635 (Version 2)
Quarter: 2018Q2

REPORT INFORMATION
  Report Type: Spontaneous
  Country: FR (occurrence: FR)
  Receive Date: 20180523
  Receipt Date: 20180629
  Transmission Date: 20180711
  Serious: Yes (Disabling, Other)
  Sender: FDA-Public Use
  Company Number: FR-ABBVIE-18K-056-2363438-00

PATIENT
  Age: 11 Year
  Sex: Female

DRUGS (2)
  1. HUMIRA [Suspect]
     Active Substance: ADALIMUMAB
     Indication: UVEITIS
     Route: 058
  2. IMETH [Concomitant]
     Active Substance: METHOTREXATE SODIUM
     Indication: UVEITIS
     Route: 048

REACTIONS (7)
  - C-reactive protein increased [Unknown]
  - Inflammation [Recovering/Resolving]
  - Palmoplantar keratoderma [Recovering/Resolving]
  - Dyshidrotic eczema [Recovering/Resolving]
  - Gait inability [Recovering/Resolving]
  - Hyperkeratosis [Recovering/Resolving]
  - Psoriasis [Recovering/Resolving]

NARRATIVE: CASE EVENT DATE: 2018
